FAERS Safety Report 16558614 (Version 1)
Quarter: 2019Q3

REPORT INFORMATION
  Report Type: Spontaneous
  Country: CN (occurrence: CN)
  Receive Date: 20190711
  Receipt Date: 20190711
  Transmission Date: 20191004
  Serious: Yes (Other)
  Sender: FDA-Public Use
  Company Number: CN-PFIZER INC-2019296636

PATIENT
  Age: 69 Year
  Sex: Female
  Weight: 61 kg

DRUGS (2)
  1. PHARMORUBICIN [Suspect]
     Active Substance: EPIRUBICIN
     Indication: CHEMOTHERAPY
     Dosage: 10 MG, 1X/DAY
     Route: 041
     Dates: start: 20190330, end: 20190401
  2. VINDESINE SULFATE [Concomitant]
     Active Substance: VINDESINE SULFATE
     Indication: CHEMOTHERAPY
     Dosage: 1 MG, 1X/DAY
     Route: 040
     Dates: start: 20190330, end: 20190401

REACTIONS (3)
  - Renal failure [Recovering/Resolving]
  - Bone marrow failure [Recovering/Resolving]
  - Neutrophil percentage increased [Unknown]

NARRATIVE: CASE EVENT DATE: 2019
